FAERS Safety Report 5587782-0 (Version None)
Quarter: 2007Q4

REPORT INFORMATION
  Report Type: 
  Country: None (occurrence: None)
  Receive Date: 20071205
  Receipt Date: 20070612
  Transmission Date: 20080405
  Serious: Yes (Hospitalization)
  Sender: FDA-Public Use
  Company Number: E3810-00952-SPO-US

PATIENT
  Age: 53 Year
  Sex: Female

DRUGS (1)
  1. ACIPHEX [Suspect]
     Indication: ULCER
     Dosage: 20 MG, ORAL
     Route: 048

REACTIONS (2)
  - STOMACH DISCOMFORT [None]
  - VOMITING [None]
